FAERS Safety Report 15543319 (Version 6)
Quarter: 2019Q3

REPORT INFORMATION
  Report Type: Report from Study
  Country: IT (occurrence: IT)
  Receive Date: 20181023
  Receipt Date: 20190828
  Transmission Date: 20191004
  Serious: Yes (Hospitalization, Other)
  Sender: FDA-Public Use
  Company Number: PHHY2018IT120869

PATIENT
  Age: 58 Year
  Sex: Female
  Weight: 100.8 kg

DRUGS (9)
  1. DEURSIL [Concomitant]
     Active Substance: URSODIOL
     Indication: CHOLELITHIASIS
     Dosage: 150 MG, UNK
     Route: 048
     Dates: start: 2015
  2. SLOWMET [Concomitant]
     Active Substance: METFORMIN HYDROCHLORIDE
     Indication: HYPERGLYCAEMIA
     Dosage: 500 MG, UNK
     Route: 048
     Dates: start: 20180612
  3. SLOWMET [Concomitant]
     Active Substance: METFORMIN HYDROCHLORIDE
     Dosage: 1000 MG, UNK
     Route: 048
     Dates: start: 20180812
  4. DIBASE [Concomitant]
     Active Substance: CHOLECALCIFEROL
     Indication: VITAMIN D DEFICIENCY
     Dosage: 50000 OT, UNK
     Route: 048
     Dates: start: 2013
  5. SLOWMET [Concomitant]
     Active Substance: METFORMIN HYDROCHLORIDE
     Dosage: 500 MG, UNK
     Route: 048
     Dates: start: 20180712
  6. SIGNIFOR LAR [Suspect]
     Active Substance: PASIREOTIDE
     Indication: ACROMEGALY
     Dosage: 40 MG, QMO
     Route: 030
     Dates: start: 20180612, end: 20181001
  7. CARDIOASPIRIN [Concomitant]
     Active Substance: ASPIRIN
     Indication: ANGIOPATHY
     Dosage: 100 MG, UNK
     Route: 048
     Dates: start: 2016
  8. LORTAAN [Concomitant]
     Active Substance: LOSARTAN POTASSIUM
     Indication: HYPERTENSION
     Dosage: 25 MG, UNK
     Route: 048
     Dates: start: 2013
  9. SALICYLATE [Concomitant]
     Active Substance: SALICYLIC ACID
     Indication: PRODUCT USED FOR UNKNOWN INDICATION
     Route: 065

REACTIONS (8)
  - Hyperhidrosis [Recovered/Resolved]
  - Polyuria [Recovered/Resolved]
  - Dry skin [Unknown]
  - Muscle abscess [Recovering/Resolving]
  - Fatigue [Unknown]
  - Diabetic ketoacidosis [Recovered/Resolved]
  - Thirst [Recovered/Resolved]
  - Hyperglycaemia [Recovered/Resolved]

NARRATIVE: CASE EVENT DATE: 20180925
